FAERS Safety Report 8481098-0 (Version None)
Quarter: 2012Q3

REPORT INFORMATION
  Report Type: 
  Country: None (occurrence: None)
  Receive Date: 20120702
  Receipt Date: 20120627
  Transmission Date: 20120928
  Serious: Yes (Other)
  Sender: FDA-Public Use
  Company Number: PHHY2012CA053466

PATIENT
  Sex: Female
  Weight: 60.2 kg

DRUGS (3)
  1. ZOLEDRONOC ACID [Suspect]
     Indication: OSTEOPOROSIS
     Dosage: 5 MG/100 ML, YEARLY
     Route: 042
     Dates: start: 20100305
  2. VITAMIN D [Concomitant]
     Dosage: 1000 IU, DAILY
     Dates: start: 20000101
  3. CALCIUM [Concomitant]
     Dosage: 1200 MG, DAILY
     Dates: start: 20000101

REACTIONS (3)
  - STERNAL FRACTURE [None]
  - RIB FRACTURE [None]
  - FALL [None]
